FAERS Safety Report 24078753 (Version 4)
Quarter: 2024Q3

REPORT INFORMATION
  Report Type: Spontaneous
  Country: JP (occurrence: JP)
  Receive Date: 20240711
  Receipt Date: 20240820
  Transmission Date: 20241016
  Serious: Yes (Other)
  Sender: BAYER
  Company Number: JP-BAYER-2024A097846

PATIENT
  Age: 31 Year
  Sex: Female

DRUGS (3)
  1. MIRENA [Suspect]
     Active Substance: LEVONORGESTREL
     Indication: Heavy menstrual bleeding
     Dosage: 20?G/DAY
     Route: 015
     Dates: start: 20190826, end: 20240704
  2. MIRENA [Suspect]
     Active Substance: LEVONORGESTREL
     Indication: Premenstrual syndrome
  3. MIRENA [Suspect]
     Active Substance: LEVONORGESTREL
     Indication: Dysmenorrhoea

REACTIONS (4)
  - Device breakage [None]
  - Complication associated with device [None]
  - Procedural pain [None]
  - Complication of device removal [None]

NARRATIVE: CASE EVENT DATE: 20240704
